FAERS Safety Report 11142136 (Version 2)
Quarter: 2015Q3

REPORT INFORMATION
  Report Type: Spontaneous
  Country: US (occurrence: US)
  Receive Date: 20150527
  Receipt Date: 20150730
  Transmission Date: 20151125
  Serious: No
  Sender: FDA-Public Use
  Company Number: US-GLAXOSMITHKLINE-US2015068474

PATIENT
  Age: 75 Year
  Sex: Female

DRUGS (2)
  1. ADVAIR DISKUS [Suspect]
     Active Substance: FLUTICASONE PROPIONATE\SALMETEROL XINAFOATE
     Dosage: UNK
     Route: 055
  2. FLOVENT DISKUS [Suspect]
     Active Substance: FLUTICASONE PROPIONATE
     Indication: PRODUCT USED FOR UNKNOWN INDICATION
     Dosage: 2 PUFF(S), U
     Route: 055

REACTIONS (6)
  - Throat tightness [Recovered/Resolved]
  - Cough [Unknown]
  - Dry throat [Unknown]
  - Bronchitis [Unknown]
  - Throat irritation [Unknown]
  - Chest discomfort [Unknown]

NARRATIVE: CASE EVENT DATE: 20150518
